FAERS Safety Report 18162294 (Version 1)
Quarter: 2020Q3

REPORT INFORMATION
  Report Type: Spontaneous
  Country: US (occurrence: US)
  Receive Date: 20200818
  Receipt Date: 20200818
  Transmission Date: 20201103
  Serious: No
  Sender: FDA-Public Use
  Company Number: None

PATIENT
  Age: 76 Year
  Sex: Female
  Weight: 73.98 kg

DRUGS (13)
  1. EVEROLIMUS. [Suspect]
     Active Substance: EVEROLIMUS
     Indication: BREAST CANCER
     Route: 048
     Dates: start: 20200302
  2. COMPAZINE [Concomitant]
     Active Substance: PROCHLORPERAZINE MALEATE
  3. FISH OIL [Concomitant]
     Active Substance: FISH OIL
  4. EXEMESTANE. [Concomitant]
     Active Substance: EXEMESTANE
  5. XGEVA [Concomitant]
     Active Substance: DENOSUMAB
  6. MVI [Concomitant]
     Active Substance: VITAMINS
  7. GLUCOSAMINE, CHONDROITIN [Concomitant]
  8. VITAMIN D [Concomitant]
     Active Substance: VITAMIN D NOS
  9. LORAZEPAM. [Concomitant]
     Active Substance: LORAZEPAM
  10. BENADRYL [Concomitant]
     Active Substance: DIPHENHYDRAMINE HYDROCHLORIDE
  11. BIOTIN [Concomitant]
     Active Substance: BIOTIN
  12. CALCIUM + VITAMIN D [Concomitant]
     Active Substance: CALCIUM\VITAMIN D
  13. ZOLOFT [Concomitant]
     Active Substance: SERTRALINE HYDROCHLORIDE

REACTIONS (1)
  - Rash [None]

NARRATIVE: CASE EVENT DATE: 20200818
